FAERS Safety Report 9626362 (Version 2)
Quarter: 2013Q4

REPORT INFORMATION
  Report Type: Spontaneous
  Country: US (occurrence: US)
  Receive Date: 20131016
  Receipt Date: 20131125
  Transmission Date: 20140711
  Serious: Yes (Other)
  Sender: FDA-Public Use
  Company Number: US-SA-2013SA101163

PATIENT
  Age: 18 Year
  Sex: Female
  Weight: 90.71 kg

DRUGS (15)
  1. LOVENOX [Suspect]
     Indication: THROMBOSIS
     Dosage: PRODUCT START DATE-2.5 YEARS
     Route: 065
  2. LOVENOX [Suspect]
     Indication: ANTIPHOSPHOLIPID SYNDROME
     Dosage: PRODUCT START DATE-2.5 YEARS
     Route: 065
  3. LOVENOX [Suspect]
     Indication: SYSTEMIC LUPUS ERYTHEMATOSUS
     Dosage: PRODUCT START DATE-2.5 YEARS
     Route: 065
  4. TIZANIDINE [Suspect]
     Route: 065
  5. BACLOFEN [Suspect]
     Route: 065
  6. OXYCODONE [Concomitant]
  7. CELLCEPT [Concomitant]
     Indication: SYSTEMIC LUPUS ERYTHEMATOSUS
     Route: 065
  8. PLAQUENIL [Concomitant]
     Indication: SYSTEMIC LUPUS ERYTHEMATOSUS
     Route: 065
  9. GABAPENTIN [Concomitant]
     Indication: SYSTEMIC LUPUS ERYTHEMATOSUS
     Route: 065
  10. FLUOXETINE [Concomitant]
     Route: 065
  11. FISH OIL [Concomitant]
  12. PANTOPRAZOLE [Concomitant]
  13. TIZANIDINE [Concomitant]
  14. SACCHAROMYCES BOULARDII [Concomitant]
  15. METAXALONE [Concomitant]

REACTIONS (11)
  - Systemic lupus erythematosus [Not Recovered/Not Resolved]
  - Myocarditis [Not Recovered/Not Resolved]
  - Chest pain [Not Recovered/Not Resolved]
  - Blood pressure decreased [Not Recovered/Not Resolved]
  - Lethargy [Not Recovered/Not Resolved]
  - Restless legs syndrome [Not Recovered/Not Resolved]
  - Pulmonary function test decreased [Not Recovered/Not Resolved]
  - Migraine [Not Recovered/Not Resolved]
  - Headache [Not Recovered/Not Resolved]
  - Hypoaesthesia [Not Recovered/Not Resolved]
  - Vomiting [Not Recovered/Not Resolved]
